FAERS Safety Report 10202390 (Version 1)
Quarter: 2014Q2

REPORT INFORMATION
  Report Type: Spontaneous
  Country: DE (occurrence: DE)
  Receive Date: 20140528
  Receipt Date: 20140528
  Transmission Date: 20141212
  Serious: Yes (Other)
  Sender: FDA-Public Use
  Company Number: DE-GILEAD-2014-0103626

PATIENT
  Sex: Male

DRUGS (3)
  1. RANOLAZINE [Suspect]
     Dosage: 375 MG, BID
     Route: 048
     Dates: start: 201211, end: 201212
  2. RANOLAZINE [Suspect]
     Dosage: 500 MG, BID
     Route: 048
     Dates: start: 201212
  3. RANOLAZINE [Suspect]
     Dosage: 750 MG, BID
     Route: 048

REACTIONS (3)
  - Retinal vein thrombosis [Unknown]
  - Macular oedema [Unknown]
  - Visual impairment [Unknown]
